FAERS Safety Report 14543987 (Version 4)
Quarter: 2018Q1

REPORT INFORMATION
  Report Type: Spontaneous
  Country: ES (occurrence: ES)
  Receive Date: 20180216
  Receipt Date: 20180301
  Transmission Date: 20180509
  Serious: Yes (Life-Threatening, Hospitalization)
  Sender: FDA-Public Use
  Company Number: ES-BEH-2018087921

PATIENT
  Age: 49 Year
  Sex: Male
  Weight: 80 kg

DRUGS (12)
  1. DIAZEPAM. [Concomitant]
     Active Substance: DIAZEPAM
     Route: 048
  2. PANTOPRAZOL [Concomitant]
     Active Substance: PANTOPRAZOLE SODIUM
     Dosage: UNK
     Route: 042
  3. METAMIZOLE SODIUM [Concomitant]
     Active Substance: METAMIZOLE SODIUM
     Route: 042
  4. ALBUREX [Suspect]
     Active Substance: ALBUMIN HUMAN
     Indication: OLIGURIA
     Dosage: 500 ML, TOT
     Route: 042
     Dates: start: 20180202, end: 20180202
  5. PANTOPRAZOL [Concomitant]
     Active Substance: PANTOPRAZOLE SODIUM
     Dosage: 40 MG, QD
     Route: 042
     Dates: start: 20180131
  6. VITAMIN K [Concomitant]
     Active Substance: PHYTONADIONE
     Route: 042
  7. ENOXAPARIN [Concomitant]
     Active Substance: ENOXAPARIN
     Route: 058
  8. PARACETAMOL [Concomitant]
     Active Substance: ACETAMINOPHEN
     Dosage: UNK
     Route: 042
  9. SALBUTAMOL [Concomitant]
     Active Substance: ALBUTEROL
     Route: 055
  10. ALBUREX [Suspect]
     Active Substance: ALBUMIN HUMAN
     Dosage: 5 %, TIME INTERVAL: 4 HOURS
     Route: 042
     Dates: start: 20180131, end: 20180131
  11. ENOXAPARINA SODICA [Concomitant]
     Active Substance: ENOXAPARIN SODIUM
     Indication: SPLENIC VEIN THROMBOSIS
     Dosage: 40 MG, QD
     Route: 058
     Dates: start: 20180131
  12. PHYSIOLOGICAL SALINE SOLUTION [Concomitant]
     Active Substance: SODIUM CHLORIDE
     Dosage: UNK
     Route: 042

REACTIONS (4)
  - Dyspnoea [Recovered/Resolved]
  - Pancreatitis acute [Unknown]
  - Bronchospasm [Recovered/Resolved]
  - Respiratory arrest [Recovered/Resolved]

NARRATIVE: CASE EVENT DATE: 20180131
